FAERS Safety Report 4748101-2 (Version None)
Quarter: 2005Q3

REPORT INFORMATION
  Report Type: 
  Country: None (occurrence: None)
  Receive Date: 20050818
  Receipt Date: 20050601
  Transmission Date: 20060218
  Serious: Yes (Hospitalization)
  Sender: FDA-Public Use
  Company Number: US-MERCK-0506USA00748

PATIENT
  Age: 60 Year
  Sex: Male
  Weight: 102 kg

DRUGS (15)
  1. VICODIN [Concomitant]
     Route: 065
  2. DOXEPIN HYDROCHLORIDE [Concomitant]
     Route: 065
  3. ZYRTEC [Concomitant]
     Route: 065
  4. VIOXX [Suspect]
     Indication: RHEUMATOID ARTHRITIS
     Route: 048
     Dates: start: 20000101, end: 20040101
  5. VIOXX [Suspect]
     Indication: PAIN
     Route: 048
     Dates: start: 20000101, end: 20040101
  6. FOLIC ACID [Concomitant]
     Route: 065
     Dates: start: 20000801
  7. [THERAPY UNSPECIFIED] [Concomitant]
     Route: 065
  8. PREVACID [Concomitant]
     Route: 065
  9. METHOTREXATE [Concomitant]
     Route: 065
  10. IRON (UNSPECIFIED) [Concomitant]
     Route: 065
  11. PREDNISONE [Concomitant]
     Route: 065
     Dates: start: 20000801
  12. ZITHROMAX [Concomitant]
     Route: 065
  13. [THERAPY UNSPECIFIED] [Concomitant]
     Route: 065
  14. HYDROCODONE BITARTRATE AND IBUPROFEN [Concomitant]
     Route: 065
  15. ULTRAM [Concomitant]
     Route: 065

REACTIONS (16)
  - ANAEMIA [None]
  - ANGINA PECTORIS [None]
  - ANGINA UNSTABLE [None]
  - ANXIETY [None]
  - ARTHROPATHY [None]
  - BRONCHITIS [None]
  - CARDIAC DISORDER [None]
  - CORONARY ARTERY DISEASE [None]
  - DEPRESSION [None]
  - GASTROOESOPHAGEAL REFLUX DISEASE [None]
  - HEPATIC ENZYME INCREASED [None]
  - HYPERTENSION [None]
  - MYOCARDIAL INFARCTION [None]
  - PAIN IN EXTREMITY [None]
  - PYREXIA [None]
  - TREMOR [None]
